FAERS Safety Report 19820506 (Version 1)
Quarter: 2021Q3

REPORT INFORMATION
  Report Type: Other
  Country: DE (occurrence: DE)
  Receive Date: 20210913
  Receipt Date: 20210913
  Transmission Date: 20211014
  Serious: Yes (Other)
  Sender: FDA-Public Use
  Company Number: DE-MACLEODS PHARMA UK LTD-MAC2021032627

PATIENT

DRUGS (4)
  1. ARIPIPRAZOLE  15 MG [Suspect]
     Active Substance: ARIPIPRAZOLE
     Indication: SCHIZOPHRENIA
     Dosage: 15 MILLIGRAM, QD, 0. ? 40.4. GESTATIONAL WEEK 1 {TRIMESTER}
     Route: 048
     Dates: start: 20200618, end: 20210329
  2. TRIMIPRAMINE [Concomitant]
     Active Substance: TRIMIPRAMINE
     Indication: SLEEP DISORDER
     Dosage: UNK, 10 [MG/D (BIS 9) ], 1 {TRIMESTER}, 0. ? 7.1. GESTATIONAL WEEK
     Route: 048
     Dates: start: 20200618, end: 20200807
  3. CLOMIFENE [Concomitant]
     Active Substance: CLOMIPHENE
     Indication: INFERTILITY FEMALE
     Dosage: 50 MILLIGRAM, QD, 0.1. ? 0.6. GESTATIONAL WEEK
     Route: 048
     Dates: start: 20200619, end: 20200624
  4. LAIF 900 [Concomitant]
     Indication: DEPRESSION
     Dosage: 900 MILLIGRAM, QD, 0. ? 40.4. GESTATIONAL WEEK, 1 {TRIMESTER}
     Route: 048
     Dates: start: 20200618, end: 20210329

REACTIONS (2)
  - Exposure during pregnancy [Unknown]
  - Gestational diabetes [Recovered/Resolved]
